FAERS Safety Report 20885035 (Version 2)
Quarter: 2022Q2

REPORT INFORMATION
  Report Type: Spontaneous
  Country: CO (occurrence: CO)
  Receive Date: 20220527
  Receipt Date: 20220608
  Transmission Date: 20220721
  Serious: No
  Sender: FDA-Public Use
  Company Number: CO-PFIZER INC-202200705548

PATIENT
  Age: 8 Year

DRUGS (1)
  1. GENOTROPIN [Suspect]
     Active Substance: SOMATROPIN
     Dosage: 1.2 MG, UNSPECIFIED FREQUENCY
     Route: 058

REACTIONS (2)
  - Device leakage [Unknown]
  - Product preparation error [Unknown]
